FAERS Safety Report 15739117 (Version 19)
Quarter: 2020Q2

REPORT INFORMATION
  Report Type: Report from Study
  Country: SE (occurrence: SE)
  Receive Date: 20181219
  Receipt Date: 20200611
  Transmission Date: 20200713
  Serious: Yes (Life-Threatening, Hospitalization, Other)
  Sender: FDA-Public Use
  Company Number: SE-ACTELION-A-CH2018-183636

PATIENT
  Age: 82 Year
  Sex: Male
  Weight: 80 kg

DRUGS (15)
  1. UPTRAVI [Suspect]
     Active Substance: SELEXIPAG
     Dosage: 2400 MCG, QD
     Route: 048
     Dates: start: 20200303, end: 20200421
  2. UPTRAVI [Suspect]
     Active Substance: SELEXIPAG
     Dosage: 1600 MCG, QD
     Route: 048
     Dates: start: 202004
  3. INSULIN LISPRO [Concomitant]
     Active Substance: INSULIN LISPRO
     Indication: TYPE 2 DIABETES MELLITUS
     Dosage: UNK
     Route: 058
     Dates: start: 20140212
  4. UPTRAVI [Suspect]
     Active Substance: SELEXIPAG
     Dosage: 800 MCG, QD
     Route: 048
     Dates: start: 20200128, end: 20200204
  5. UPTRAVI [Suspect]
     Active Substance: SELEXIPAG
     Dosage: 2000 MCG, QD
     Route: 048
     Dates: start: 20200218, end: 20200303
  6. SPIRONOLACTONE. [Concomitant]
     Active Substance: SPIRONOLACTONE
     Indication: DIURETIC THERAPY
     Dosage: UNK, PRN
     Route: 048
     Dates: start: 20181115
  7. INSULIN GLARGINE [Concomitant]
     Active Substance: INSULIN GLARGINE
     Indication: TYPE 2 DIABETES MELLITUS
     Dosage: UNK
     Route: 058
     Dates: start: 20110413
  8. UPTRAVI [Suspect]
     Active Substance: SELEXIPAG
     Indication: PULMONARY ARTERIAL HYPERTENSION
     Dosage: 400 MCG, QD
     Route: 048
     Dates: start: 20200121, end: 20200128
  9. UPTRAVI [Suspect]
     Active Substance: SELEXIPAG
     Dosage: 2000 MCG, QD
     Route: 048
     Dates: start: 20200421, end: 202004
  10. UPTRAVI [Suspect]
     Active Substance: SELEXIPAG
     Dosage: 1600 MCG, QD
     Route: 048
     Dates: start: 20200211, end: 20200218
  11. ADCIRCA [Suspect]
     Active Substance: TADALAFIL
     Indication: PULMONARY ARTERIAL HYPERTENSION
     Dosage: 40 MG, QD
     Route: 048
     Dates: start: 20181115, end: 20181211
  12. OPSUMIT [Suspect]
     Active Substance: MACITENTAN
     Indication: PULMONARY ARTERIAL HYPERTENSION
     Dosage: 10 MG, QD
     Route: 048
     Dates: start: 20181115
  13. METFORMIN [Concomitant]
     Active Substance: METFORMIN HYDROCHLORIDE
     Indication: TYPE 2 DIABETES MELLITUS
     Dosage: UNK
     Route: 048
     Dates: start: 20100604
  14. UPTRAVI [Suspect]
     Active Substance: SELEXIPAG
     Dosage: 1200 MCG, QD
     Route: 048
     Dates: start: 20200204, end: 20200211
  15. WARFARIN [Suspect]
     Active Substance: WARFARIN
     Indication: ANTICOAGULANT THERAPY
     Dosage: UNK
     Route: 048
     Dates: start: 20150407

REACTIONS (18)
  - Dyspnoea [Unknown]
  - Pain in extremity [Recovered/Resolved with Sequelae]
  - Arthritis [Recovered/Resolved]
  - Rib fracture [Unknown]
  - Haemoglobin decreased [Unknown]
  - Headache [Unknown]
  - Dysphagia [Not Recovered/Not Resolved]
  - Blood pressure increased [Unknown]
  - Subarachnoid haemorrhage [Recovered/Resolved]
  - Fall [Unknown]
  - Pericardial effusion [Unknown]
  - Tachycardia [Unknown]
  - Pleural effusion [Recovered/Resolved with Sequelae]
  - Syncope [Recovered/Resolved]
  - Brain natriuretic peptide abnormal [Unknown]
  - Pulmonary arterial hypertension [Unknown]
  - Scratch [Recovered/Resolved]
  - Disease progression [Unknown]

NARRATIVE: CASE EVENT DATE: 20181209
